FAERS Safety Report 7275455-8 (Version None)
Quarter: 2011Q1

REPORT INFORMATION
  Report Type: 
  Country: None (occurrence: None)
  Receive Date: 20110202
  Receipt Date: 20110202
  Transmission Date: 20110831
  Serious: Yes (Hospitalization)
  Sender: FDA-Public Use
  Company Number: None

PATIENT
  Age: 43 Year
  Sex: Female
  Weight: 69 kg

DRUGS (1)
  1. IBUPROFEN [Suspect]
     Indication: FLANK PAIN
     Dosage: PRN PO
     Route: 048

REACTIONS (2)
  - ANAEMIA [None]
  - FLANK PAIN [None]
